FAERS Safety Report 4442077-3 (Version None)
Quarter: 2004Q3

REPORT INFORMATION
  Report Type: 
  Country: None (occurrence: None)
  Receive Date: 20040903
  Receipt Date: 20040407
  Transmission Date: 20050211
  Serious: Yes (Hospitalization)
  Sender: FDA-Public Use
  Company Number: 2004UW09554

PATIENT

DRUGS (2)
  1. CRESTOR [Suspect]
  2. ULTRACET [Concomitant]

REACTIONS (1)
  - RASH GENERALISED [None]
